FAERS Safety Report 24070497 (Version 1)
Quarter: 2024Q3

REPORT INFORMATION
  Report Type: Spontaneous
  Country: US (occurrence: None)
  Receive Date: 20240709
  Receipt Date: 20240709
  Transmission Date: 20241017
  Serious: Yes (Other)
  Sender: Public
  Company Number: None

PATIENT
  Age: 49 Year
  Sex: Male
  Weight: 83.25 kg

DRUGS (2)
  1. ELIQUIS [Suspect]
     Active Substance: APIXABAN
     Indication: Superficial vein thrombosis
     Dosage: TWICE A DAY ORAL
     Route: 048
     Dates: start: 20240507, end: 20240520
  2. ELIQUIS [Suspect]
     Active Substance: APIXABAN
     Indication: Pulmonary embolism

REACTIONS (5)
  - Back pain [None]
  - Nephrolithiasis [None]
  - Renal haemorrhage [None]
  - Urinary tract infection [None]
  - Nephropathy [None]

NARRATIVE: CASE EVENT DATE: 20240513
